FAERS Safety Report 7529566 (Version 8)
Quarter: 2012Q4

REPORT INFORMATION
  Report Type: 
  Country: US (occurrence: US)
  Receive Date: 20100805
  Receipt Date: 20121207
  Transmission Date: 20130627
  Serious: Yes (Other)
  Sender: FDA-Public Use
  Company Number: PHEH2010US03507

PATIENT
  Age: 44 None
  Sex: Female

DRUGS (24)
  1. AREDIA [Suspect]
  2. TRIPHASIL [Concomitant]
  3. METFORMIN [Concomitant]
  4. AROMASIN [Concomitant]
  5. CYTOXAN [Concomitant]
  6. FEMARA [Concomitant]
  7. TYLENOL [Concomitant]
  8. FERROUS SULPHATE [Concomitant]
  9. VICODIN [Concomitant]
  10. IBUPROFEN [Concomitant]
     Dosage: 800 mg, UNK
  11. FENTANYL [Concomitant]
  12. ROBINUL [Concomitant]
     Dosage: 1 mg, UNK
  13. BUPROPION [Concomitant]
     Dosage: 75 mg, UNK
  14. EFFEXOR [Concomitant]
  15. PROTONIX [Concomitant]
  16. AMITRIPTYLINE [Concomitant]
  17. CLONAZEPAM [Concomitant]
  18. PAMIDRONATE [Concomitant]
  19. DIFLUCAN [Concomitant]
  20. LORAZEPAM [Concomitant]
  21. NABUMETONE [Concomitant]
  22. AMBIEN [Concomitant]
  23. LITHIUM CARBONATE [Concomitant]
  24. TALWIN [Concomitant]

REACTIONS (53)
  - Bipolar disorder [Unknown]
  - Adjustment disorder [Unknown]
  - Major depression [Unknown]
  - Oral candidiasis [Unknown]
  - Cystitis bacterial [Unknown]
  - Osteoarthritis [Unknown]
  - Gastrooesophageal reflux disease [Unknown]
  - Osteonecrosis of jaw [Unknown]
  - Bone disorder [Unknown]
  - Bone loss [Unknown]
  - Tooth loss [Unknown]
  - Eating disorder [Unknown]
  - Pain [Unknown]
  - Deformity [Unknown]
  - Anxiety [Unknown]
  - Decreased interest [Unknown]
  - Injury [Unknown]
  - Polycystic ovaries [Unknown]
  - Diarrhoea [Unknown]
  - Hyperhidrosis [Unknown]
  - Dry mouth [Unknown]
  - Hyperlipidaemia [Unknown]
  - Obesity [Unknown]
  - Hot flush [Unknown]
  - Back pain [Unknown]
  - Hirsutism [Unknown]
  - Headache [Unknown]
  - Impaired healing [Unknown]
  - Breast cancer recurrent [Unknown]
  - Metastases to lymph nodes [Unknown]
  - Metastases to central nervous system [Unknown]
  - Metastases to bone [Unknown]
  - Metastases to spine [Unknown]
  - Burning sensation [Unknown]
  - Periodontal disease [Unknown]
  - Dental caries [Unknown]
  - Gingival disorder [Unknown]
  - Toothache [Unknown]
  - Alopecia [Unknown]
  - Osteoradionecrosis [Unknown]
  - Corneal deposits [Unknown]
  - Urinary tract infection [Recovered/Resolved]
  - Cervical dysplasia [Unknown]
  - Nausea [Unknown]
  - Dyshidrotic eczema [Unknown]
  - Drug hypersensitivity [Unknown]
  - Plantar fasciitis [Unknown]
  - Vestibulitis [Not Recovered/Not Resolved]
  - Vulvovaginal pain [Unknown]
  - Ingrowing nail [Unknown]
  - Arthralgia [Unknown]
  - Ear pain [Unknown]
  - Human papilloma virus test positive [Unknown]
